FAERS Safety Report 20986273 (Version 1)
Quarter: 2022Q2

REPORT INFORMATION
  Report Type: Spontaneous
  Country: US (occurrence: None)
  Receive Date: 20220617
  Receipt Date: 20220617
  Transmission Date: 20220720
  Serious: No
  Sender: FDA-Public Use
  Company Number: None

PATIENT
  Age: 52 Year
  Sex: Male

DRUGS (1)
  1. ABIRATERONE [Suspect]
     Active Substance: ABIRATERONE
     Dosage: 1000MG DAILY ORAL?
     Route: 048
     Dates: end: 20220601

REACTIONS (6)
  - Night sweats [None]
  - Acne [None]
  - Diarrhoea [None]
  - Drug ineffective [None]
  - Lymphoma [None]
  - Prostatic specific antigen increased [None]

NARRATIVE: CASE EVENT DATE: 20220509
